FAERS Safety Report 4310164-6 (Version None)
Quarter: 2004Q1

REPORT INFORMATION
  Report Type: 
  Country: None (occurrence: None)
  Receive Date: 20040302
  Receipt Date: 20040302
  Transmission Date: 20041129
  Serious: Yes (Hospitalization)
  Sender: FDA-Public Use
  Company Number: None

PATIENT
  Age: 55 Year
  Sex: Male
  Weight: 62.6 kg

DRUGS (2)
  1. ANCEF [Suspect]
     Indication: CHILLS
     Dosage: 1 GM IV X 1 DOSE
     Route: 042
     Dates: start: 20040219
  2. ANCEF [Suspect]
     Indication: PYREXIA
     Dosage: 1 GM IV X 1 DOSE
     Route: 042
     Dates: start: 20040219

REACTIONS (7)
  - BLOOD PRESSURE SYSTOLIC INCREASED [None]
  - BURNING SENSATION [None]
  - CHILLS [None]
  - PERIORBITAL OEDEMA [None]
  - PRURITUS [None]
  - TONGUE DISORDER [None]
  - VISION BLURRED [None]
